FAERS Safety Report 12805771 (Version 1)
Quarter: 2016Q4

REPORT INFORMATION
  Report Type: Spontaneous
  Country: ZA (occurrence: ZA)
  Receive Date: 20161004
  Receipt Date: 20161004
  Transmission Date: 20170207
  Serious: Yes (Other)
  Sender: FDA-Public Use
  Company Number: ZA-MYLANLABS-2016M1042297

PATIENT

DRUGS (1)
  1. EMTRICITABINE/TENOFOVIR DISOPROXIL FUMARATE [Suspect]
     Active Substance: EMTRICITABINE\TENOFOVIR DISOPROXIL FUMARATE
     Indication: PROPHYLAXIS AGAINST HIV INFECTION
     Dosage: 300MG TENOFOVIR DISOPROXIL FUMARATE AND 200MG EMTRICITABINE
     Route: 048

REACTIONS (4)
  - Treatment noncompliance [Recovered/Resolved]
  - Hepatotoxicity [None]
  - Exposure during pregnancy [None]
  - Hepatitis B [Recovered/Resolved]
